FAERS Safety Report 4356740-6 (Version None)
Quarter: 2004Q2

REPORT INFORMATION
  Report Type: 
  Country: None (occurrence: None)
  Receive Date: 20040507
  Receipt Date: 20040110
  Transmission Date: 20050107
  Serious: Yes (Hospitalization, Other)
  Sender: FDA-Public Use
  Company Number: KII-2004-0010027

PATIENT
  Age: 53 Year
  Sex: Male
  Weight: 150.6 kg

DRUGS (5)
  1. MORPHINE SULFATE [Suspect]
     Indication: DRUG USE FOR UNKNOWN INDICATION
     Dosage: UNK, UNK, UNK
     Route: 065
  2. ACETAMINOPHEN AND HYDROCODONE BITARTRATE [Suspect]
     Indication: DRUG USE FOR UNKNOWN INDICATION
     Dosage: UNK, UNK, UNK
     Route: 065
  3. PROPOXYPHENE HCL AND ACETAMINOPHEN [Suspect]
     Indication: DRUG USE FOR UNKNOWN INDICATION
     Dosage: UNK, UNK, UNK
     Route: 065
  4. BENZODIAZEPINE DERIVATIVES [Suspect]
     Indication: DRUG USE FOR UNKNOWN INDICATION
     Dosage: UNK, UNK, UNK
     Route: 065
  5. WARFARIN SODIUM [Suspect]
     Indication: DRUG USE FOR UNKNOWN INDICATION
     Dosage: UNK, UNK, UNK
     Route: 065

REACTIONS (11)
  - ACIDOSIS [None]
  - AGGRESSION [None]
  - BLOOD PRESSURE FLUCTUATION [None]
  - COLLAPSE OF LUNG [None]
  - GASTROINTESTINAL HAEMORRHAGE [None]
  - HEART RATE INCREASED [None]
  - LIVER FUNCTION TEST ABNORMAL [None]
  - MULTIPLE DRUG OVERDOSE [None]
  - PNEUMONIA ASPIRATION [None]
  - PROTHROMBIN TIME PROLONGED [None]
  - VENTRICULAR EXTRASYSTOLES [None]
